FAERS Safety Report 10279555 (Version 1)
Quarter: 2014Q3

REPORT INFORMATION
  Report Type: Spontaneous
  Country: US (occurrence: US)
  Receive Date: 20140707
  Receipt Date: 20140707
  Transmission Date: 20150326
  Serious: Yes (Hospitalization, Other)
  Sender: FDA-Public Use
  Company Number: US-JNJFOC-20140617423

PATIENT
  Age: 35 Year
  Sex: Male

DRUGS (2)
  1. ETHANOL [Suspect]
     Active Substance: ALCOHOL
     Indication: BINGE DRINKING
     Route: 048
  2. LISTERINE ORIGINAL [Suspect]
     Active Substance: EUCALYPTOL\MENTHOL\METHYL SALICYLATE\THYMOL
     Indication: PRODUCT USED FOR UNKNOWN INDICATION
     Route: 048

REACTIONS (11)
  - Intentional product misuse [Unknown]
  - Abdominal pain upper [Unknown]
  - Leukocytosis [Unknown]
  - Haematemesis [Unknown]
  - Thrombocytopenia [Unknown]
  - Metabolic acidosis [Recovered/Resolved]
  - Confusional state [Unknown]
  - Abdominal discomfort [Unknown]
  - Vomiting [Unknown]
  - Mucosal dryness [Unknown]
  - Renal failure acute [Unknown]
